FAERS Safety Report 7194797-8 (Version None)
Quarter: 2010Q4

REPORT INFORMATION
  Report Type: 
  Country: None (occurrence: None)
  Receive Date: 20101223
  Receipt Date: 20101214
  Transmission Date: 20110411
  Serious: Yes (Hospitalization)
  Sender: FDA-Public Use
  Company Number: GB-ELI_LILLY_AND_COMPANY-GB201012003372

PATIENT
  Age: 69 Year
  Sex: Female
  Weight: 79 kg

DRUGS (7)
  1. OLANZAPINE [Suspect]
     Indication: MAJOR DEPRESSION
     Dosage: 15 MG, DAILY (1/D)
     Route: 048
     Dates: start: 20101026
  2. ASPIRIN [Concomitant]
     Indication: SUBCLAVIAN VEIN THROMBOSIS
     Dosage: 75 MG, DAILY (1/D)
  3. CLENIL [Concomitant]
     Dosage: 50 UG, DAILY (1/D)
     Route: 055
  4. LANSOPRAZOLE [Concomitant]
  5. MIRTAZAPINE [Concomitant]
     Dosage: 30 MG, DAILY (1/D)
  6. SALBUTAMOL [Concomitant]
  7. VERAPAMIL [Concomitant]
     Indication: SUBCLAVIAN VEIN THROMBOSIS
     Dosage: 240 MG, DAILY (1/D)

REACTIONS (1)
  - PULMONARY EMBOLISM [None]
